FAERS Safety Report 8282297-3 (Version None)
Quarter: 2012Q2

REPORT INFORMATION
  Report Type: 
  Country: None (occurrence: None)
  Receive Date: 20120413
  Receipt Date: 20120404
  Transmission Date: 20120825
  Serious: Yes (Other)
  Sender: FDA-Public Use
  Company Number: CA-JNJFOC-20120402410

PATIENT
  Sex: Female
  Weight: 68 kg

DRUGS (2)
  1. ZOLEDRONOC ACID [Suspect]
     Indication: PRODUCT USED FOR UNKNOWN INDICATION
     Route: 065
  2. REMICADE [Suspect]
     Indication: RHEUMATOID ARTHRITIS
     Route: 042
     Dates: start: 20010101

REACTIONS (2)
  - DYSPNOEA [None]
  - STOMATITIS [None]
